FAERS Safety Report 7484069-6 (Version None)
Quarter: 2011Q2

REPORT INFORMATION
  Report Type: 
  Country: None (occurrence: None)
  Receive Date: 20110513
  Receipt Date: 20110513
  Transmission Date: 20111010
  Serious: Yes (Other)
  Sender: FDA-Public Use
  Company Number: None

PATIENT
  Sex: Female
  Weight: 63.5036 kg

DRUGS (1)
  1. IMPLANON [Suspect]
     Indication: CONTRACEPTION
     Dates: start: 20110301, end: 20110512

REACTIONS (5)
  - FUNGAL INFECTION [None]
  - ABDOMINAL TENDERNESS [None]
  - RASH PRURITIC [None]
  - IMPLANT SITE PAIN [None]
  - SINUS DISORDER [None]
